FAERS Safety Report 25068674 (Version 1)
Quarter: 2025Q1

REPORT INFORMATION
  Report Type: Spontaneous
  Country: US (occurrence: US)
  Receive Date: 20250312
  Receipt Date: 20250312
  Transmission Date: 20250409
  Serious: No
  Sender: SANOFI AVENTIS
  Company Number: US-SANOFI-02440121

PATIENT
  Age: 77 Year
  Sex: Male

DRUGS (1)
  1. TOUJEO MAX [Suspect]
     Active Substance: INSULIN GLARGINE
     Indication: Diabetes mellitus
     Dosage: 120 MG, BID

REACTIONS (3)
  - Blood glucose increased [Unknown]
  - Device mechanical issue [Unknown]
  - Inappropriate schedule of product administration [Unknown]
